FAERS Safety Report 5348374-1 (Version None)
Quarter: 2007Q2

REPORT INFORMATION
  Report Type: 
  Country: None (occurrence: None)
  Receive Date: 20070605
  Receipt Date: 20070521
  Transmission Date: 20071010
  Serious: Yes (Hospitalization)
  Sender: FDA-Public Use
  Company Number: DSA_29962_2007

PATIENT
  Sex: Female
  Weight: 49 kg

DRUGS (5)
  1. TEMESTA (TEMESTA) (NOT SPECIFIED) [Suspect]
     Dosage: (2 MG QD ORAL)
     Route: 048
     Dates: start: 20070319, end: 20070417
  2. EFFEXOR [Suspect]
     Dosage: (75 MG QD ORAL)
     Route: 048
     Dates: start: 20070323, end: 20070326
  3. EFFEXOR [Suspect]
     Dosage: (150 MG QD ORAL)
     Dates: start: 20070327
  4. REMERON [Suspect]
     Dosage: (15 MG QD ORAL)
     Dates: start: 20070316
  5. SEROQUEL [Suspect]
     Dosage: (50 MG QD ORAL)
     Route: 048
     Dates: start: 20070319

REACTIONS (6)
  - CONCUSSION [None]
  - CRUSH INJURY [None]
  - DRUG INTERACTION [None]
  - FALL [None]
  - ORTHOSTATIC HYPOTENSION [None]
  - SKIN LACERATION [None]
